FAERS Safety Report 10222010 (Version 2)
Quarter: 2014Q2

REPORT INFORMATION
  Report Type: Report from Study
  Country: US (occurrence: US)
  Receive Date: 20140606
  Receipt Date: 20140606
  Transmission Date: 20141212
  Serious: Yes (Hospitalization)
  Sender: FDA-Public Use
  Company Number: US-BIOMARINAP-US-2014-102327

PATIENT
  Age: 5 Year
  Sex: Male
  Weight: 16.3 kg

DRUGS (2)
  1. NAGLAZYME [Suspect]
     Indication: MUCOPOLYSACCHARIDOSIS VI
     Dosage: 1 MG/KG, QW
     Route: 041
     Dates: start: 20110228
  2. CLARITIN                           /00413701/ [Concomitant]
     Indication: PREMEDICATION
     Dosage: 10 MG, QW
     Route: 048

REACTIONS (1)
  - Sleep apnoea syndrome [Recovered/Resolved]
